FAERS Safety Report 16476789 (Version 3)
Quarter: 2023Q4

REPORT INFORMATION
  Report Type: Report from Study
  Country: AT (occurrence: AT)
  Receive Date: 20190626
  Receipt Date: 20231023
  Transmission Date: 20240109
  Serious: Yes (Hospitalization)
  Sender: FDA-Public Use
  Company Number: AT-CELLTRION INC.-2019AT022057

PATIENT

DRUGS (26)
  1. HERCEPTIN [Suspect]
     Active Substance: TRASTUZUMAB
     Indication: HER2 positive breast cancer
     Dosage: 8 MG/KG, MOST RECENT DOSE PRIOR TO THE EVENT: 19/JUL/2018
     Route: 042
     Dates: start: 20180628, end: 20180628
  2. TRASTUZUMAB [Suspect]
     Active Substance: TRASTUZUMAB
     Indication: Breast cancer
     Dosage: 8 MILLIGRAM PER DAY
     Route: 042
     Dates: start: 20180628
  3. TRASTUZUMAB [Suspect]
     Active Substance: TRASTUZUMAB
     Dosage: 8 MILLIGRAM PER DAY
     Route: 042
     Dates: start: 20180719
  4. DOCETAXEL [Suspect]
     Active Substance: DOCETAXEL
     Indication: Breast cancer
     Dosage: 50 MILLIGRAM, EVERY 3 WEEKS
     Route: 042
     Dates: start: 20180628
  5. DOCETAXEL [Suspect]
     Active Substance: DOCETAXEL
     Dosage: 50 MILLIGRAM, EVERY 3 WEEKS, MOST RECENT DOSE: 19 JUL 2018
     Route: 042
     Dates: start: 20180719
  6. PERTUZUMAB [Suspect]
     Active Substance: PERTUZUMAB
     Indication: Breast cancer
     Dosage: 840 MILLIGRAM PER DAY
     Route: 042
     Dates: start: 20180628
  7. PERTUZUMAB [Suspect]
     Active Substance: PERTUZUMAB
     Dosage: 840 MILLIGRAM PER DAY
     Route: 042
     Dates: start: 20180719
  8. ENALAPRIL [Concomitant]
     Active Substance: ENALAPRIL
     Indication: Left ventricular dysfunction
     Dosage: UNK
     Route: 065
     Dates: start: 20180809
  9. ALLOPURINOL [Concomitant]
     Active Substance: ALLOPURINOL
     Dosage: UNK
     Route: 065
     Dates: start: 20180715, end: 20180715
  10. EMEND [Concomitant]
     Active Substance: APREPITANT
     Dosage: ONGOING = NOT CHECKED
     Route: 065
     Dates: start: 20180809, end: 20181020
  11. EMEND [Concomitant]
     Active Substance: APREPITANT
     Dosage: UNK
     Route: 065
     Dates: start: 20180809, end: 20181018
  12. LOVENOX [Concomitant]
     Active Substance: ENOXAPARIN SODIUM
     Dosage: UNK
     Route: 065
     Dates: start: 20180715, end: 20180715
  13. ALPRAZOLAM [Concomitant]
     Active Substance: ALPRAZOLAM
     Dosage: UNK
     Route: 065
     Dates: start: 20180615, end: 20181015
  14. ZOFRAN [Concomitant]
     Active Substance: ONDANSETRON HYDROCHLORIDE
     Dosage: UNK
     Route: 065
     Dates: start: 20180628, end: 20181018
  15. ZOFRAN [Concomitant]
     Active Substance: ONDANSETRON HYDROCHLORIDE
     Dosage: ONGOING = NOT CHECKED
     Route: 065
     Dates: start: 20180715, end: 20181018
  16. DEXAMETHASONE [Concomitant]
     Active Substance: DEXAMETHASONE
     Dosage: UNK
     Route: 065
     Dates: start: 20180628, end: 20181020
  17. DEXAMETHASONE [Concomitant]
     Active Substance: DEXAMETHASONE
     Dosage: ONGOING = NOT CHECKED
     Route: 065
     Dates: start: 20180628, end: 20181018
  18. PANTOPRAZOLE SODIUM [Concomitant]
     Active Substance: PANTOPRAZOLE SODIUM
     Dosage: UNK
     Route: 065
     Dates: start: 20180727, end: 20180730
  19. POLYETHYLENE GLYCOL 3350\POTASSIUM CHLORIDE\SODIUM BICARBONATE\SODIUM [Concomitant]
     Active Substance: POLYETHYLENE GLYCOL 3350\POTASSIUM CHLORIDE\SODIUM BICARBONATE\SODIUM CHLORIDE
     Route: 065
  20. FENISTIL (AUSTRIA) [Concomitant]
     Dosage: UNK
     Route: 065
     Dates: start: 20180628, end: 20181018
  21. LOPERAMIDE HYDROCHLORIDE [Concomitant]
     Active Substance: LOPERAMIDE HYDROCHLORIDE
     Dosage: UNK
     Route: 065
     Dates: start: 20180727, end: 20180809
  22. GLANDOMED [Concomitant]
     Dosage: UNK
     Route: 065
     Dates: start: 20180615, end: 20180715
  23. NEULASTA [Concomitant]
     Active Substance: PEGFILGRASTIM
     Dosage: UNK
     Route: 065
     Dates: start: 20180720, end: 20180720
  24. NOVALGIN (METAMIZOLE SODIUM) [Concomitant]
     Active Substance: METAMIZOLE SODIUM
     Dosage: UNK
     Route: 065
     Dates: start: 20180615
  25. PANTOPRAZOLE [Concomitant]
     Active Substance: PANTOPRAZOLE
     Dosage: UNK
     Route: 065
     Dates: start: 20180715
  26. BISOPROLOL [Concomitant]
     Active Substance: BISOPROLOL\BISOPROLOL FUMARATE
     Indication: Left ventricular dysfunction
     Dosage: UNK
     Route: 065
     Dates: start: 20180809

REACTIONS (3)
  - General physical health deterioration [Recovered/Resolved]
  - Product use issue [Unknown]
  - Incorrect dose administered [Unknown]

NARRATIVE: CASE EVENT DATE: 20180727
